FAERS Safety Report 4877584-2 (Version None)
Quarter: 2006Q1

REPORT INFORMATION
  Report Type: 
  Country: None (occurrence: None)
  Receive Date: 20060111
  Receipt Date: 20060102
  Transmission Date: 20060701
  Serious: Yes (Hospitalization)
  Sender: FDA-Public Use
  Company Number: FR-GLAXOSMITHKLINE-B0405976A

PATIENT
  Age: 71 Year
  Sex: Male
  Weight: 70 kg

DRUGS (12)
  1. ZOPHREN [Suspect]
     Indication: VOMITING
     Dosage: 8MG TWICE PER DAY
     Route: 048
     Dates: start: 20051209, end: 20051211
  2. ENDOXAN [Suspect]
     Dosage: 13G PER DAY
     Route: 042
     Dates: start: 20051209, end: 20051209
  3. PRIMPERAN INJ [Suspect]
     Indication: NAUSEA
     Dosage: 20MG THREE TIMES PER DAY
     Route: 042
     Dates: start: 20051209, end: 20051211
  4. SOLU-MEDROL [Suspect]
     Dosage: 70MG PER DAY
     Route: 048
     Dates: start: 20051209, end: 20051211
  5. DOXORUBICIN [Suspect]
     Dosage: 90MG PER DAY
     Route: 042
     Dates: start: 20051209, end: 20051209
  6. VINCRISTINE [Suspect]
     Dosage: 2MG PER DAY
     Route: 042
     Dates: start: 20051209, end: 20051211
  7. HYDRATION THERAPY [Suspect]
  8. ROCEPHIN [Concomitant]
     Route: 065
     Dates: start: 20051209
  9. LOVENOX [Concomitant]
     Route: 065
     Dates: start: 20051209
  10. ACUPAN [Concomitant]
     Route: 065
     Dates: start: 20051209
  11. KAYEXALATE [Concomitant]
     Route: 065
     Dates: start: 20051209
  12. ALBUMIN (HUMAN) [Concomitant]
     Dates: start: 20051208, end: 20051209

REACTIONS (8)
  - ACUTE PULMONARY OEDEMA [None]
  - CARDIOPULMONARY FAILURE [None]
  - GENERALISED OEDEMA [None]
  - MYOCARDIAL ISCHAEMIA [None]
  - OEDEMA GENITAL [None]
  - OEDEMA PERIPHERAL [None]
  - PULMONARY HYPERTENSION [None]
  - PYREXIA [None]
